FAERS Safety Report 13357499 (Version 1)
Quarter: 2017Q1

REPORT INFORMATION
  Report Type: Spontaneous
  Country: GB (occurrence: GB)
  Receive Date: 20170322
  Receipt Date: 20170322
  Transmission Date: 20170429
  Serious: Yes (Other)
  Sender: FDA-Public Use
  Company Number: GB-TEVA-749422ACC

PATIENT
  Age: 64 Year
  Sex: Female
  Weight: 13 kg

DRUGS (4)
  1. ACTAVIS UK ZOPICLONE [Concomitant]
     Active Substance: ZOPICLONE
  2. ACCORD HEALTHCARE SIMVASTATIN [Concomitant]
  3. ACTAVIS UK PREDNISOLONE [Suspect]
     Active Substance: PREDNISOLONE
     Indication: MYALGIA
     Dosage: 15 MILLIGRAM DAILY;
     Route: 048
     Dates: start: 20170216, end: 20170222
  4. LANSOPRAZOL [Concomitant]
     Active Substance: LANSOPRAZOLE

REACTIONS (4)
  - Mood swings [Recovered/Resolved]
  - Anger [Recovered/Resolved]
  - Aggression [Recovered/Resolved]
  - Confusional state [Recovered/Resolved]

NARRATIVE: CASE EVENT DATE: 20170219
